FAERS Safety Report 6110263-2 (Version None)
Quarter: 2009Q1

REPORT INFORMATION
  Report Type: 
  Country: None (occurrence: None)
  Receive Date: 20090310
  Receipt Date: 20090305
  Transmission Date: 20090719
  Serious: Yes (Death, Hospitalization, Other)
  Sender: FDA-Public Use
  Company Number: US-CELGENEUS-163-21880-08041712

PATIENT
  Sex: Male

DRUGS (3)
  1. REVLIMID [Suspect]
     Indication: MULTIPLE MYELOMA
     Route: 048
     Dates: start: 20080326, end: 20080408
  2. REVLIMID [Suspect]
     Dosage: 5-10 MG
     Route: 048
     Dates: start: 20080501
  3. REVLIMID [Suspect]
     Route: 048
     Dates: start: 20080701, end: 20090301

REACTIONS (6)
  - BLOOD COUNT ABNORMAL [None]
  - BLOOD PRESSURE DECREASED [None]
  - DEATH [None]
  - FATIGUE [None]
  - PLATELET COUNT DECREASED [None]
  - PNEUMONIA [None]
